FAERS Safety Report 5402189-4 (Version None)
Quarter: 2007Q3

REPORT INFORMATION
  Report Type: 
  Country: None (occurrence: None)
  Receive Date: 20070730
  Receipt Date: 20070723
  Transmission Date: 20080115
  Serious: Yes (Hospitalization)
  Sender: FDA-Public Use
  Company Number: 2007BI015537

PATIENT
  Sex: Female

DRUGS (1)
  1. AVONEX [Suspect]
     Dosage: IM
     Route: 030
     Dates: start: 20060401

REACTIONS (3)
  - GASTRIC DISORDER [None]
  - PULMONARY THROMBOSIS [None]
  - THROMBOSIS [None]
